FAERS Safety Report 5159981-3 (Version None)
Quarter: 2006Q4

REPORT INFORMATION
  Report Type: 
  Country: None (occurrence: None)
  Receive Date: 20061129
  Receipt Date: 20060505
  Transmission Date: 20070319
  Serious: No
  Sender: FDA-Public Use
  Company Number: 2006/01797

PATIENT
  Sex: Male

DRUGS (1)
  1. BUPROPION HYDROCHLORIDE [Suspect]
     Indication: DEPRESSION

REACTIONS (1)
  - INTENTIONAL DRUG MISUSE [None]
